FAERS Safety Report 20776272 (Version 1)
Quarter: 2022Q2

REPORT INFORMATION
  Report Type: Spontaneous
  Country: SE (occurrence: SE)
  Receive Date: 20220502
  Receipt Date: 20220502
  Transmission Date: 20220721
  Serious: Yes (Other)
  Sender: FDA-Public Use
  Company Number: SE-MYLANLABS-2022M1027032

PATIENT
  Age: 62 Year
  Sex: Female

DRUGS (3)
  1. AZACITIDINE [Suspect]
     Active Substance: AZACITIDINE
     Indication: Myelodysplastic syndrome
     Dosage: 100 MILLIGRAM/SQ. METER, CYCLE (FOR 5 DAYS IN A CYCLE; RECEIVED...
  2. AZACITIDINE [Suspect]
     Active Substance: AZACITIDINE
     Indication: Thrombosis
     Dosage: MONOTHERAPY DOSAGE NOT STATED
     Route: 065
  3. VENETOCLAX [Suspect]
     Active Substance: VENETOCLAX
     Indication: Myelodysplastic syndrome
     Dosage: 400 MILLIGRAM, CYCLE (FOR 7 DAYS IN A CYCLE; RECEIVED 1...
     Route: 065

REACTIONS (2)
  - Intentional product use issue [Unknown]
  - Post transplant lymphoproliferative disorder [Unknown]
